FAERS Safety Report 5651270-3 (Version None)
Quarter: 2008Q1

REPORT INFORMATION
  Report Type: 
  Country: None (occurrence: None)
  Receive Date: 20080305
  Receipt Date: 20080228
  Transmission Date: 20080703
  Serious: No
  Sender: FDA-Public Use
  Company Number: GB-PFIZER INC-2008016618

PATIENT
  Age: 72 Year
  Sex: Male

DRUGS (12)
  1. PREDNISOLONE [Suspect]
     Indication: CHEMOTHERAPY
     Dates: start: 20070622, end: 20071116
  2. ACYCLOVIR [Suspect]
     Indication: CHEMOTHERAPY
     Dates: start: 20070622, end: 20071116
  3. CYCLOPHOSPHAMIDE [Suspect]
     Indication: CHEMOTHERAPY
     Dates: start: 20070622, end: 20071116
  4. FLUCONAZOLE [Suspect]
     Indication: CHEMOTHERAPY
     Dates: start: 20070622, end: 20071116
  5. ALENDRONATE SODIUM [Suspect]
     Indication: OSTEOPOROSIS
  6. ALLOPURINOL [Suspect]
  7. CIPROFLOXACIN [Suspect]
     Indication: CHEMOTHERAPY
     Dates: start: 20070622, end: 20071116
  8. LANSOPRAZOLE [Suspect]
  9. ONDANSETRON [Suspect]
  10. RITUXIMAB [Suspect]
     Indication: CHEMOTHERAPY
     Dates: start: 20070622, end: 20071116
  11. VINCRISTINE [Suspect]
     Indication: CHEMOTHERAPY
     Dates: start: 20070622, end: 20071116
  12. CO-TRIMOXAZOLE [Suspect]

REACTIONS (2)
  - NO ADVERSE EVENT [None]
  - TOXIC SKIN ERUPTION [None]
